FAERS Safety Report 5921011-0 (Version None)
Quarter: 2008Q4

REPORT INFORMATION
  Report Type: 
  Country: None (occurrence: None)
  Receive Date: 20081016
  Receipt Date: 20081008
  Transmission Date: 20090506
  Serious: Yes (Death, Hospitalization, Disabling, Other)
  Sender: FDA-Public Use
  Company Number: DE-PFIZER INC-2005163994

PATIENT
  Sex: Female
  Weight: 54 kg

DRUGS (3)
  1. SU-011,248 [Suspect]
     Indication: RENAL CELL CARCINOMA
     Route: 048
     Dates: end: 20060608
  2. IRENAT [Concomitant]
     Route: 048
     Dates: start: 20051129
  3. METHIMAZOLE [Concomitant]
     Route: 048
     Dates: start: 20051129

REACTIONS (4)
  - DISEASE PROGRESSION [None]
  - PARESIS [None]
  - PERIPHERAL SENSORY NEUROPATHY [None]
  - RENAL CELL CARCINOMA [None]
